FAERS Safety Report 5062770-1 (Version None)
Quarter: 2006Q3

REPORT INFORMATION
  Report Type: 
  Country: None (occurrence: None)
  Receive Date: 20060726
  Receipt Date: 20060713
  Transmission Date: 20061208
  Serious: Yes (Hospitalization)
  Sender: FDA-Public Use
  Company Number: BE-ABBOTT-06P-013-0338015-00

PATIENT
  Sex: Male
  Weight: 51 kg

DRUGS (3)
  1. HUMIRA [Suspect]
     Indication: RHEUMATOID ARTHRITIS
     Route: 058
     Dates: start: 20060308, end: 20060608
  2. ACETAMINOPHEN [Concomitant]
     Indication: PROPHYLAXIS
  3. OMEPRAZOLE [Concomitant]
     Indication: DRUG USE FOR UNKNOWN INDICATION

REACTIONS (3)
  - MUSCULOSKELETAL PAIN [None]
  - PARAPROTEINAEMIA [None]
  - WALDENSTROM'S MACROGLOBULINAEMIA [None]
